FAERS Safety Report 6129792-0 (Version None)
Quarter: 2009Q1

REPORT INFORMATION
  Report Type: 
  Country: None (occurrence: None)
  Receive Date: 20090324
  Receipt Date: 20090319
  Transmission Date: 20090719
  Serious: Yes (Other)
  Sender: FDA-Public Use
  Company Number: IT-SANOFI-SYNTHELABO-F01200900276

PATIENT
  Sex: Male

DRUGS (3)
  1. BEVACIZUMAB [Suspect]
     Route: 041
  2. CAPECITABINE [Suspect]
     Dosage: 1800 MG FOR 2 WEEKS, Q3W
     Route: 048
  3. OXALIPLATIN [Suspect]
     Indication: COLON CANCER
     Route: 041

REACTIONS (1)
  - LEFT VENTRICULAR DYSFUNCTION [None]
